FAERS Safety Report 6955468-3 (Version None)
Quarter: 2010Q3

REPORT INFORMATION
  Report Type: 
  Country: None (occurrence: None)
  Receive Date: 20100830
  Receipt Date: 20100818
  Transmission Date: 20110219
  Serious: Yes (Other)
  Sender: FDA-Public Use
  Company Number: DE-PFIZER INC-2010104472

PATIENT

DRUGS (1)
  1. SUTENT [Suspect]

REACTIONS (3)
  - LIP SWELLING [None]
  - LOCAL SWELLING [None]
  - SWELLING FACE [None]
